FAERS Safety Report 5147555-X (Version None)
Quarter: 2006Q4

REPORT INFORMATION
  Report Type: 
  Country: None (occurrence: None)
  Receive Date: 20061106
  Receipt Date: 20061025
  Transmission Date: 20070319
  Serious: Yes (Other)
  Sender: FDA-Public Use
  Company Number: 2006131448

PATIENT
  Age: 42 Year
  Sex: Female
  Weight: 58.9676 kg

DRUGS (6)
  1. XANAX [Suspect]
     Indication: PANIC ATTACK
     Dosage: AS NEEDED
     Dates: start: 19980101
  2. XANAX [Suspect]
     Indication: SLEEP DISORDER
     Dosage: AS NEEDED
     Dates: start: 19980101
  3. LYRICA [Suspect]
     Indication: NEURALGIA
     Dosage: 150 MG (50 MG, 3 IN 1 D)
     Dates: start: 20060908
  4. AMITRIPTYLINE HYDROCHLORIDE [Suspect]
     Indication: SLEEP DISORDER
     Dosage: 25 MG (25 MG, 1 IN 1 D)
     Dates: start: 20061023
  5. PERCOCET [Suspect]
     Indication: PAIN
     Dates: start: 20060101
  6. PERCOCET [Suspect]
     Indication: SLEEP DISORDER
     Dates: start: 20060101

REACTIONS (11)
  - DRUG INEFFECTIVE [None]
  - DRUG INTERACTION [None]
  - FATIGUE [None]
  - INSOMNIA [None]
  - NEURALGIA [None]
  - NEUROPATHY [None]
  - PERIPHERAL NERVE OPERATION [None]
  - PROCEDURAL PAIN [None]
  - RESTLESSNESS [None]
  - SELF-MEDICATION [None]
  - SOMNOLENCE [None]
